FAERS Safety Report 5939021-6 (Version None)
Quarter: 2008Q4

REPORT INFORMATION
  Report Type: 
  Country: None (occurrence: None)
  Receive Date: 20081103
  Receipt Date: 20081023
  Transmission Date: 20090506
  Serious: Yes (Other)
  Sender: FDA-Public Use
  Company Number: US-JNJFOC-20081006736

PATIENT
  Age: 75 Year
  Sex: Female
  Weight: 74.84 kg

DRUGS (7)
  1. TYLENOL (CAPLET) [Suspect]
     Indication: ARTHRITIS
     Route: 048
  2. TYLENOL (CAPLET) [Suspect]
     Indication: HEADACHE
     Route: 048
  3. VALTREX [Concomitant]
     Indication: HERPES OPHTHALMIC
  4. LISINOPRIL [Concomitant]
     Indication: HYPERTENSION
  5. EVISTA [Concomitant]
  6. VESICARE [Concomitant]
     Indication: HYPERTENSION
  7. CYMBALTA [Concomitant]
     Indication: ANXIETY

REACTIONS (3)
  - CHOKING [None]
  - COUGH [None]
  - WHEEZING [None]
